FAERS Safety Report 9790655 (Version 1)
Quarter: 2013Q4

REPORT INFORMATION
  Report Type: Spontaneous
  Country: JP (occurrence: JP)
  Receive Date: 20131231
  Receipt Date: 20131231
  Transmission Date: 20140711
  Serious: Yes (Hospitalization)
  Sender: FDA-Public Use
  Company Number: JP-GLAXOSMITHKLINE-B0781294A

PATIENT
  Age: 47 Year
  Sex: Male

DRUGS (7)
  1. LAMICTAL [Suspect]
     Indication: BIPOLAR DISORDER
     Dosage: 25MG PER DAY
     Route: 048
     Dates: start: 201112, end: 2011
  2. LAMICTAL [Suspect]
     Indication: BIPOLAR DISORDER
     Dosage: 25MG TWICE PER DAY
     Route: 048
     Dates: start: 2011, end: 20120121
  3. LIMAS [Concomitant]
     Indication: BIPOLAR DISORDER
     Dosage: 400MG FOUR TIMES PER DAY
     Route: 048
     Dates: start: 2006, end: 20120121
  4. LANDSEN [Concomitant]
     Indication: BIPOLAR DISORDER
     Dosage: 1MG TWICE PER DAY
     Route: 048
     Dates: start: 201109, end: 20120121
  5. LANDSEN [Concomitant]
     Indication: BIPOLAR DISORDER
     Dosage: 1MG PER DAY
     Route: 048
     Dates: start: 201109, end: 20120121
  6. LULLAN [Concomitant]
     Route: 048
     Dates: start: 201109
  7. CALONAL [Concomitant]
     Route: 065

REACTIONS (25)
  - Stevens-Johnson syndrome [Recovering/Resolving]
  - Erythema multiforme [Unknown]
  - Epidermal necrosis [Unknown]
  - Staphylococcal sepsis [Unknown]
  - Aphthous stomatitis [Unknown]
  - Pyrexia [Unknown]
  - Lip erosion [Unknown]
  - Oral mucosa erosion [Unknown]
  - Drug eruption [Unknown]
  - Scrotal ulcer [Unknown]
  - Gamma-glutamyltransferase increased [Unknown]
  - C-reactive protein increased [Unknown]
  - Oral mucosal eruption [Unknown]
  - Rash [Recovering/Resolving]
  - Conjunctival hyperaemia [Unknown]
  - Oropharyngeal pain [Unknown]
  - Stomatitis [Unknown]
  - Perivascular dermatitis [Unknown]
  - Enanthema [Recovering/Resolving]
  - Hepatic function abnormal [Unknown]
  - Malaise [Unknown]
  - Lip haemorrhage [Unknown]
  - Mouth haemorrhage [Unknown]
  - Mouth ulceration [Unknown]
  - Spondylitis [Unknown]
